FAERS Safety Report 21023274 (Version 2)
Quarter: 2022Q3

REPORT INFORMATION
  Report Type: Report from Study
  Country: CA (occurrence: CA)
  Receive Date: 20220629
  Receipt Date: 20220704
  Transmission Date: 20221026
  Serious: No
  Sender: FDA-Public Use
  Company Number: CA-ABBVIE-22K-028-4447786-00

PATIENT
  Age: 31 Year
  Sex: Female

DRUGS (1)
  1. HUMIRA [Suspect]
     Active Substance: ADALIMUMAB
     Indication: Crohn^s disease
     Route: 058
     Dates: start: 20191203

REACTIONS (6)
  - Caesarean section [Unknown]
  - Maternal exposure during pregnancy [Unknown]
  - Live birth [Unknown]
  - Hernia [Unknown]
  - Stress [Unknown]
  - Pain [Unknown]

NARRATIVE: CASE EVENT DATE: 20220309
